FAERS Safety Report 5885311-5 (Version None)
Quarter: 2008Q3

REPORT INFORMATION
  Report Type: 
  Country: None (occurrence: None)
  Receive Date: 20080916
  Receipt Date: 20080903
  Transmission Date: 20090109
  Serious: Yes (Hospitalization)
  Sender: FDA-Public Use
  Company Number: NL-ROCHE-578660

PATIENT
  Sex: Male
  Weight: 80 kg

DRUGS (11)
  1. MIRCERA [Suspect]
     Route: 042
     Dates: start: 20080721, end: 20080724
  2. ETALPHA [Concomitant]
     Dosage: DOSE NOT CHANGED
     Dates: start: 20080630
  3. CLEMASTINE FUMARATE [Concomitant]
     Dosage: DOSE NOT CHANGED
     Dates: start: 20080519
  4. INHIBIN [Concomitant]
     Dosage: DOSE NOT CHANGED
     Dates: start: 20080515
  5. LIPITOR [Concomitant]
     Dosage: DOSE NOT CHANGED
     Dates: start: 20080515
  6. VENOFER [Concomitant]
     Dosage: DOSE NOT CHANGED
     Dates: start: 20080422
  7. MICARDIS [Concomitant]
     Dosage: DOSE NOT CHANGED
     Dates: start: 20080319
  8. CALCICHEW [Concomitant]
     Dosage: DOSE NOT CHANGED
     Dates: start: 20080319
  9. ASCAL [Concomitant]
     Dosage: DOSE NOT CHANGED
     Dates: start: 20080319
  10. OMEPRAZOLE [Concomitant]
     Dosage: DOSE NOT CHANGED
     Dates: start: 20080319
  11. SELOKEN [Concomitant]
     Dosage: DRUG: SELOKENE; DOSE NOT CHANGED
     Dates: start: 20080319

REACTIONS (4)
  - ANAPHYLACTIC SHOCK [None]
  - HYPOTENSION [None]
  - RASH [None]
  - SHUNT OCCLUSION [None]
